FAERS Safety Report 14327682 (Version 1)
Quarter: 2017Q4

REPORT INFORMATION
  Report Type: Other
  Country: IT (occurrence: IT)
  Receive Date: 20171227
  Receipt Date: 20171227
  Transmission Date: 20180321
  Serious: Yes (Other)
  Sender: FDA-Public Use
  Company Number: IT-APOTEX-2017AP023659

PATIENT
  Age: 42 Year
  Sex: Male

DRUGS (5)
  1. AMLODIPINE [Suspect]
     Active Substance: AMLODIPINE BESYLATE
     Indication: PRODUCT USED FOR UNKNOWN INDICATION
     Dosage: UNK, IN TOTAL
     Route: 048
     Dates: start: 20171207, end: 20171207
  2. CAMPRAL [Suspect]
     Active Substance: ACAMPROSATE CALCIUM
     Indication: PRODUCT USED FOR UNKNOWN INDICATION
     Dosage: UNK, IN TOTAL
     Route: 048
     Dates: start: 20171207, end: 20171207
  3. INVEGA [Suspect]
     Active Substance: PALIPERIDONE
     Indication: PRODUCT USED FOR UNKNOWN INDICATION
     Dosage: UNK
     Route: 048
  4. ALCOVER [Suspect]
     Active Substance: SODIUM OXYBATE
     Indication: PRODUCT USED FOR UNKNOWN INDICATION
     Dosage: UNK, IN TOTAL
     Route: 048
     Dates: start: 20171207, end: 20171207
  5. LORAZEPAM. [Suspect]
     Active Substance: LORAZEPAM
     Indication: PRODUCT USED FOR UNKNOWN INDICATION
     Dosage: UNK, IN TOTAL
     Route: 048
     Dates: start: 20171207, end: 20171207

REACTIONS (4)
  - Intentional overdose [Unknown]
  - Hypotension [Unknown]
  - Intentional self-injury [Unknown]
  - Coma [Unknown]

NARRATIVE: CASE EVENT DATE: 20171207
